FAERS Safety Report 8407317-4 (Version None)
Quarter: 2012Q2

REPORT INFORMATION
  Report Type: 
  Country: None (occurrence: None)
  Receive Date: 20120529
  Receipt Date: 20120518
  Transmission Date: 20120825
  Serious: Yes (Other)
  Sender: FDA-Public Use
  Company Number: CIP-2012-00150

PATIENT

DRUGS (1)
  1. IRINOTECAN HCL [Suspect]
     Indication: BILE DUCT CANCER
     Dosage: 200MG LOADED INTO 2 VIALS CONTAINING 2ML OF THE 100-500UM BEADS, VIA FEMORAL CATHETER

REACTIONS (2)
  - PAIN [None]
  - POST EMBOLISATION SYNDROME [None]
